FAERS Safety Report 18193706 (Version 3)
Quarter: 2022Q2

REPORT INFORMATION
  Report Type: Spontaneous
  Country: US (occurrence: US)
  Receive Date: 20200825
  Receipt Date: 20220415
  Transmission Date: 20220721
  Serious: No
  Sender: FDA-Public Use
  Company Number: US-PFIZER INC-2020243356

PATIENT
  Age: 76 Year
  Sex: Male

DRUGS (2)
  1. XELJANZ [Suspect]
     Active Substance: TOFACITINIB CITRATE
     Indication: Rheumatoid arthritis
     Dosage: 5 MG, 2X/DAY
  2. AMICAR [Concomitant]
     Active Substance: AMINOCAPROIC ACID
     Indication: Blood disorder
     Dosage: UNK

REACTIONS (3)
  - Confusional state [Unknown]
  - Platelet count decreased [Unknown]
  - Product dose omission issue [Unknown]
